FAERS Safety Report 15019978 (Version 1)
Quarter: 2018Q2

REPORT INFORMATION
  Report Type: Report from Study
  Country: JP (occurrence: JP)
  Receive Date: 20180618
  Receipt Date: 20180618
  Transmission Date: 20180711
  Serious: Yes (Hospitalization, Other)
  Sender: FDA-Public Use
  Company Number: JP-AMGEN-JPNNI2018080424

PATIENT
  Age: 63 Year
  Sex: Male

DRUGS (6)
  1. ETELCALCETIDE [Suspect]
     Active Substance: ETELCALCETIDE
     Indication: HYPERPARATHYROIDISM SECONDARY
     Dosage: 5 MG, 3 TIMES/WK
     Route: 042
     Dates: start: 20170404, end: 20170515
  2. ETELCALCETIDE [Suspect]
     Active Substance: ETELCALCETIDE
     Dosage: 10 MG, 3 TIMES/WK
     Route: 042
     Dates: start: 20170516, end: 20171122
  3. ETELCALCETIDE [Suspect]
     Active Substance: ETELCALCETIDE
     Dosage: 5 MG, 3 TIMES/WK
     Route: 042
     Dates: start: 20171211
  4. OXAROL [Concomitant]
     Active Substance: MAXACALCITOL
  5. RIONA [Concomitant]
     Active Substance: FERRIC CITRATE ANHYDROUS
     Dosage: UNK
     Dates: end: 20170516
  6. KIKLIN [Concomitant]
     Active Substance: BIXALOMER

REACTIONS (3)
  - Atrial fibrillation [Unknown]
  - Cardiac failure [Unknown]
  - Hypocalcaemia [Not Recovered/Not Resolved]

NARRATIVE: CASE EVENT DATE: 20170425
